FAERS Safety Report 18401391 (Version 1)
Quarter: 2020Q4

REPORT INFORMATION
  Report Type: Report from Study
  Country: US (occurrence: US)
  Receive Date: 20201019
  Receipt Date: 20201019
  Transmission Date: 20210114
  Serious: Yes (Other)
  Sender: FDA-Public Use
  Company Number: NVSC2020US275674

PATIENT
  Sex: Female

DRUGS (2)
  1. XIIDRA [Suspect]
     Active Substance: LIFITEGRAST
     Indication: DRY EYE
     Dosage: UNK
     Route: 047
     Dates: start: 20201005
  2. XIIDRA [Suspect]
     Active Substance: LIFITEGRAST
     Dosage: UNK, BID
     Route: 047
     Dates: start: 2020, end: 2020

REACTIONS (8)
  - Headache [Unknown]
  - Swelling face [Unknown]
  - Vision blurred [Unknown]
  - Oropharyngeal pain [Unknown]
  - Sluggishness [Unknown]
  - Eye irritation [Not Recovered/Not Resolved]
  - Barrett^s oesophagus [Unknown]
  - Dysphagia [Unknown]
